FAERS Safety Report 8945555 (Version 1)
Quarter: 2012Q4

REPORT INFORMATION
  Report Type: 
  Country: JP (occurrence: JP)
  Receive Date: 20121205
  Receipt Date: 20121205
  Transmission Date: 20130627
  Serious: Yes (Other)
  Sender: FDA-Public Use
  Company Number: JP-PFIZER INC-2012302291

PATIENT
  Age: 79 Year
  Sex: Female

DRUGS (2)
  1. GABAPEN [Suspect]
     Indication: TRIGEMINAL NEURALGIA
     Dosage: 400 mg, 3x/day
     Route: 048
     Dates: start: 201210
  2. RIVOTRIL [Suspect]
     Indication: TRIGEMINAL NEURALGIA
     Dosage: UNK
     Dates: start: 20121124, end: 20121126

REACTIONS (4)
  - Depressed level of consciousness [Unknown]
  - Dizziness [Unknown]
  - Flashback [Unknown]
  - Speech disorder [Unknown]
